FAERS Safety Report 19207739 (Version 2)
Quarter: 2021Q2

REPORT INFORMATION
  Report Type: Report from Study
  Country: AR (occurrence: AR)
  Receive Date: 20210503
  Receipt Date: 20210515
  Transmission Date: 20210717
  Serious: No
  Sender: FDA-Public Use
  Company Number: NVSC2021AR095126

PATIENT
  Sex: Female

DRUGS (8)
  1. NEPARVIS [Suspect]
     Active Substance: SACUBITRIL\VALSARTAN
     Indication: MYOCARDIAL INFARCTION
  2. T4 [Concomitant]
     Active Substance: LEVOTHYROXINE
     Indication: HYPERTHYROIDISM
     Dosage: 75 MG, QD
     Route: 065
  3. T4 [Concomitant]
     Active Substance: LEVOTHYROXINE
     Dosage: 100 MG, QD
     Route: 065
  4. FUROSEMIDE. [Concomitant]
     Active Substance: FUROSEMIDE
     Dosage: 1 OF 40MG, WITH BREAKFAST AND TEA TIME
     Route: 065
  5. NEPARVIS [Suspect]
     Active Substance: SACUBITRIL\VALSARTAN
     Indication: INFARCTION
     Dosage: 50 MG, HALF A TABLET AT BREAKFAST AND ONE TABLET AT NIGHT
     Route: 065
     Dates: end: 20210506
  6. ENTRESTO [Suspect]
     Active Substance: SACUBITRIL\VALSARTAN
     Indication: PRODUCT USED FOR UNKNOWN INDICATION
     Dosage: 50 MG, HALF A TABLET AT BREAKFAST AND A TABLET AT NIGHT
     Route: 065
  7. ROSUVASTATIN. [Concomitant]
     Active Substance: ROSUVASTATIN
     Dosage: 1 OF 20 MG, AT NIGHT
     Route: 065
  8. SPIRONOLACTONE. [Concomitant]
     Active Substance: SPIRONOLACTONE
     Dosage: 1 OF 25 MG, DURING BREAKFAST
     Route: 065

REACTIONS (7)
  - Cardiac disorder [Recovered/Resolved]
  - Abdominal pain upper [Recovering/Resolving]
  - Off label use [Unknown]
  - Wrong technique in product usage process [Recovering/Resolving]
  - Product use in unapproved indication [Unknown]
  - Blood pressure abnormal [Recovering/Resolving]
  - Gastroenteritis [Recovering/Resolving]
